FAERS Safety Report 13012770 (Version 1)
Quarter: 2016Q4

REPORT INFORMATION
  Report Type: Spontaneous
  Country: US (occurrence: US)
  Receive Date: 20161209
  Receipt Date: 20161209
  Transmission Date: 20170207
  Serious: Yes (Other)
  Sender: FDA-Public Use
  Company Number: PHHY2016US166036

PATIENT
  Age: 61 Year
  Sex: Female

DRUGS (2)
  1. GLEEVEC [Suspect]
     Active Substance: IMATINIB MESYLATE
     Dosage: 200 MG, QD
     Route: 065
  2. GLEEVEC [Suspect]
     Active Substance: IMATINIB MESYLATE
     Indication: GASTROINTESTINAL STROMAL TUMOUR
     Dosage: 400 MG, QD
     Route: 065

REACTIONS (9)
  - Swelling face [Unknown]
  - Appetite disorder [Unknown]
  - Papule [Unknown]
  - Actinic keratosis [Unknown]
  - Second primary malignancy [Unknown]
  - Erythema [Unknown]
  - Stomatitis [Unknown]
  - Squamous cell carcinoma [Unknown]
  - Fatigue [Unknown]
